FAERS Safety Report 13853580 (Version 3)
Quarter: 2017Q3

REPORT INFORMATION
  Report Type: Spontaneous
  Country: DE (occurrence: DE)
  Receive Date: 20170810
  Receipt Date: 20170918
  Transmission Date: 20171127
  Serious: Yes (Other)
  Sender: FDA-Public Use
  Company Number: DE-BIOGEN-2017BI00444367

PATIENT
  Age: 38 Year
  Sex: Female

DRUGS (2)
  1. ZINBRYTA [Suspect]
     Active Substance: DACLIZUMAB
     Indication: RELAPSING-REMITTING MULTIPLE SCLEROSIS
     Route: 058
     Dates: start: 20161108, end: 20170807
  2. L-THYROXINE [Concomitant]
     Active Substance: LEVOTHYROXINE
     Indication: HYPOTHYROIDISM
     Dosage: DOSE = 100
     Route: 048

REACTIONS (2)
  - Amylase increased [Recovered/Resolved]
  - Lipase increased [Not Recovered/Not Resolved]

NARRATIVE: CASE EVENT DATE: 20170710
